FAERS Safety Report 10154122 (Version 1)
Quarter: 2014Q2

REPORT INFORMATION
  Report Type: Spontaneous
  Country: JP (occurrence: None)
  Receive Date: 20140502
  Receipt Date: 20140502
  Transmission Date: 20141212
  Serious: Yes (Hospitalization, Other)
  Sender: FDA-Public Use
  Company Number: ABR_01615_2014

PATIENT
  Age: 40 Year
  Sex: Female
  Weight: 50 kg

DRUGS (2)
  1. ERYTHROMYCIN STEARATE [Suspect]
     Indication: UTERINE INFECTION
     Route: 048
     Dates: start: 20070421, end: 20070421
  2. AMPICILLIN [Concomitant]

REACTIONS (4)
  - Stillbirth [None]
  - Shortened cervix [None]
  - Amniotic cavity infection [None]
  - Exposure during pregnancy [None]
